FAERS Safety Report 7121424-8 (Version None)
Quarter: 2010Q4

REPORT INFORMATION
  Report Type: 
  Country: None (occurrence: None)
  Receive Date: 20101124
  Receipt Date: 20101112
  Transmission Date: 20110411
  Serious: Yes (Other)
  Sender: FDA-Public Use
  Company Number: PHHY2010US76897

PATIENT
  Age: 18 Year
  Sex: Male

DRUGS (8)
  1. FOCALIN XR [Suspect]
     Dosage: UNK
  2. COGENTIN [Suspect]
     Route: 048
  3. BENADRYL [Suspect]
     Route: 042
  4. DEPAKOTE ER [Concomitant]
  5. LAMICTAL [Concomitant]
  6. RISPERDAL [Concomitant]
  7. TENEX [Concomitant]
  8. CYPROHEPTADINE HCL [Concomitant]

REACTIONS (3)
  - ANURIA [None]
  - EYE ROLLING [None]
  - OCULOGYRIC CRISIS [None]
